FAERS Safety Report 16635955 (Version 1)
Quarter: 2019Q3

REPORT INFORMATION
  Report Type: Spontaneous
  Country: IT (occurrence: IT)
  Receive Date: 20190726
  Receipt Date: 20190726
  Transmission Date: 20191004
  Serious: Yes (Other)
  Sender: FDA-Public Use
  Company Number: IT-ASTRAZENECA-2019SF04363

PATIENT
  Age: 61 Year
  Sex: Male

DRUGS (9)
  1. DEPAKIN [Suspect]
     Active Substance: VALPROATE SODIUM
     Indication: DRUG ABUSE
     Dosage: 2.0DF ONCE/SINGLE ADMINISTRATION
     Route: 065
  2. TAVOR (LORAZEPAM) [Suspect]
     Active Substance: LORAZEPAM
     Indication: DRUG ABUSE
     Dosage: 6.0DF ONCE/SINGLE ADMINISTRATION
     Route: 065
  3. MIRTAZAPINE. [Concomitant]
     Active Substance: MIRTAZAPINE
     Dosage: 1.0DF UNKNOWN
  4. QUETIAPINE. [Concomitant]
     Active Substance: QUETIAPINE
     Dosage: 1.0DF UNKNOWN
  5. QUETIAPINE. [Suspect]
     Active Substance: QUETIAPINE
     Indication: DRUG ABUSE
     Dosage: 20.0DF ONCE/SINGLE ADMINISTRATION
     Route: 048
  6. TAVOR [Concomitant]
  7. MIRTAZAPINE. [Suspect]
     Active Substance: MIRTAZAPINE
     Indication: DRUG ABUSE
     Dosage: 20.0DF ONCE/SINGLE ADMINISTRATION
     Route: 065
  8. DEPAKIN [Concomitant]
     Active Substance: VALPROATE SODIUM
     Dosage: 2.0DF UNKNOWN
  9. CARDIOASPIRIN [Suspect]
     Active Substance: ASPIRIN
     Indication: DRUG ABUSE
     Dosage: 30.0DF ONCE/SINGLE ADMINISTRATION
     Route: 065

REACTIONS (4)
  - Drug abuse [Recovering/Resolving]
  - Intentional self-injury [Recovering/Resolving]
  - Speech disorder [Recovering/Resolving]
  - Bradyphrenia [Recovering/Resolving]

NARRATIVE: CASE EVENT DATE: 20190611
